FAERS Safety Report 6642982-3 (Version None)
Quarter: 2010Q1

REPORT INFORMATION
  Report Type: 
  Country: None (occurrence: None)
  Receive Date: 20100319
  Receipt Date: 20100312
  Transmission Date: 20100710
  Serious: Yes (Disabling)
  Sender: FDA-Public Use
  Company Number: A0846235A

PATIENT
  Age: 32 Year
  Sex: Female

DRUGS (1)
  1. LAMICTAL CD [Suspect]
     Indication: BIPOLAR DISORDER
     Dosage: 100MG TWICE PER DAY
     Route: 048
     Dates: start: 20091201

REACTIONS (3)
  - DIARRHOEA [None]
  - GASTRITIS EROSIVE [None]
  - VOMITING [None]
